FAERS Safety Report 4434371-7 (Version None)
Quarter: 2004Q3

REPORT INFORMATION
  Report Type: 
  Country: None (occurrence: None)
  Receive Date: 20040825
  Receipt Date: 20040810
  Transmission Date: 20050211
  Serious: Yes (Hospitalization, Other)
  Sender: FDA-Public Use
  Company Number: USA040875108

PATIENT
  Age: 66 Year
  Sex: Male
  Weight: 123 kg

DRUGS (1)
  1. HUMULIN 70/30 [Suspect]
     Dates: start: 19920101

REACTIONS (4)
  - BLOOD GLUCOSE DECREASED [None]
  - COLONIC POLYP [None]
  - LOCALISED INFECTION [None]
  - POSTOPERATIVE INFECTION [None]
